FAERS Safety Report 4276264-4 (Version None)
Quarter: 2004Q1

REPORT INFORMATION
  Report Type: 
  Country: None (occurrence: None)
  Receive Date: 20040120
  Receipt Date: 20040120
  Transmission Date: 20041129
  Serious: No
  Sender: FDA-Public Use
  Company Number: None

PATIENT
  Age: 58 Year
  Sex: Female
  Weight: 89.8122 kg

DRUGS (2)
  1. HALOPERIDOL [Suspect]
     Indication: PSYCHOTIC DISORDER
     Dosage: 200MG Q 3 WEEKS IM
     Route: 030
     Dates: start: 20031213
  2. HALOPERIDOL [Suspect]
     Indication: PSYCHOTIC DISORDER
     Dosage: 200MG Q 3 WEEKS IM
     Route: 030
     Dates: start: 20040114

REACTIONS (4)
  - FEELING HOT [None]
  - INJECTION SITE ERYTHEMA [None]
  - MASS [None]
  - PAIN [None]
